FAERS Safety Report 16682451 (Version 1)
Quarter: 2019Q3

REPORT INFORMATION
  Report Type: Spontaneous
  Country: US (occurrence: US)
  Receive Date: 20190808
  Receipt Date: 20190808
  Transmission Date: 20191004
  Serious: Yes (Hospitalization)
  Sender: FDA-Public Use
  Company Number: US-MYLANLABS-2019M1072723

PATIENT
  Age: 38 Year
  Sex: Female

DRUGS (27)
  1. CARBOPLATIN. [Suspect]
     Active Substance: CARBOPLATIN
     Indication: NEUROENDOCRINE TUMOUR
     Route: 065
  2. DOXORUBICIN [Suspect]
     Active Substance: DOXORUBICIN
     Indication: NEUROENDOCRINE TUMOUR
     Route: 065
  3. DULOXETINE. [Suspect]
     Active Substance: DULOXETINE
     Indication: CANCER PAIN
     Route: 065
  4. SERTRALINE [Suspect]
     Active Substance: SERTRALINE HYDROCHLORIDE
     Indication: MAJOR DEPRESSION
     Route: 065
  5. MIDAZOLAM [Suspect]
     Active Substance: MIDAZOLAM HYDROCHLORIDE
     Indication: DELIRIUM
     Dosage: TITRATED TO 4 MG/H
     Route: 050
  6. ETOPOSIDE. [Suspect]
     Active Substance: ETOPOSIDE
     Indication: NEUROENDOCRINE TUMOUR
     Route: 065
  7. GABAPENTIN. [Suspect]
     Active Substance: GABAPENTIN
     Indication: CANCER PAIN
     Route: 065
  8. METHADONE [Suspect]
     Active Substance: METHADONE HYDROCHLORIDE
     Dosage: 30 MILLIGRAM, Q8H
     Route: 048
  9. MIRTAZAPINE. [Suspect]
     Active Substance: MIRTAZAPINE
     Indication: MAJOR DEPRESSION
     Route: 065
  10. KETAMINE [Suspect]
     Active Substance: KETAMINE
     Dosage: 0.1-0.2 MG/KG/H (LOW DOSE); INFUSION
     Route: 050
  11. OXYCODONE [Suspect]
     Active Substance: OXYCODONE
     Dosage: DOSE INCREASED; AS NEEDED
     Route: 065
  12. PEMBROLIZUMAB. [Suspect]
     Active Substance: PEMBROLIZUMAB
     Indication: NEUROENDOCRINE TUMOUR
     Route: 065
  13. STREPTOZOCIN [Suspect]
     Active Substance: STREPTOZOCIN
     Indication: NEUROENDOCRINE TUMOUR
     Route: 065
  14. DEXAMETHASONE. [Concomitant]
     Active Substance: DEXAMETHASONE
     Indication: PRODUCT USED FOR UNKNOWN INDICATION
     Dosage: 12 MILLIGRAM, QD
     Route: 042
  15. HYDROMORPHONE [Suspect]
     Active Substance: HYDROMORPHONE
     Indication: CANCER PAIN
     Dosage: BASAL INFUSION RATE OF 1.5 MG/H AND 2MG DEMAND DOSE EVERY 15 MINUTES AS NEEDED
     Route: 041
  16. HYDROMORPHONE [Suspect]
     Active Substance: HYDROMORPHONE
     Dosage: REDUCED BY HALF (TO 0.7 MG/H)
     Route: 041
  17. HYDROMORPHONE [Suspect]
     Active Substance: HYDROMORPHONE
     Dosage: TWO HYDROMORPHONE 4MG IV BOLUS RESCUE DOSES
     Route: 040
  18. CHLORPROMAZINE. [Suspect]
     Active Substance: CHLORPROMAZINE
     Indication: PRODUCT USED FOR UNKNOWN INDICATION
     Route: 065
  19. FLUOROURACIL. [Suspect]
     Active Substance: FLUOROURACIL
     Indication: NEUROENDOCRINE TUMOUR
     Route: 065
  20. METHADONE [Suspect]
     Active Substance: METHADONE HYDROCHLORIDE
     Indication: CANCER PAIN
     Dosage: WITH A GOAL TO TITRATE TO 30 MG EVERY 8 HOURS OVER 5 DAYS
     Route: 048
  21. KETAMINE [Suspect]
     Active Substance: KETAMINE
     Indication: HYPERAESTHESIA
     Dosage: INFUSION
     Route: 050
  22. KETAMINE [Suspect]
     Active Substance: KETAMINE
     Dosage: REINITIATED AT 0.2 MG/KG/H AND WAS SLOWLY TITRATED UP BY 0.1 MG/KG/H TO 0.5 MG/ KG/H OVER THE NEX...
  23. LORAZEPAM. [Suspect]
     Active Substance: LORAZEPAM
     Indication: ANXIETY
     Dosage: 1.5 MILLIGRAM, Q8H
     Route: 042
  24. HYDROMORPHONE                      /00080902/ [Suspect]
     Active Substance: HYDROMORPHONE HYDROCHLORIDE
     Indication: CANCER PAIN
     Dosage: 6 MILLIGRAM, Q2H
     Route: 065
  25. MIDAZOLAM [Suspect]
     Active Substance: MIDAZOLAM HYDROCHLORIDE
     Dosage: MULTIPLE 8MG BOLUSES
     Route: 050
  26. OXYCODONE [Suspect]
     Active Substance: OXYCODONE
     Indication: CANCER PAIN
     Dosage: AS NEEDED. FORMULATION: IMMEDIATE RELEASE
     Route: 065
  27. OXYCODONE                          /00045603/ [Suspect]
     Active Substance: OXYCODONE
     Indication: CANCER PAIN
     Dosage: CONTINUOUS RELEASE; AS NEEDED. FORMULATION: CONTINUOUS RELEASE
     Route: 065

REACTIONS (2)
  - Drug ineffective [Unknown]
  - Hyperaesthesia [Recovering/Resolving]
